FAERS Safety Report 6264107-9 (Version None)
Quarter: 2009Q3

REPORT INFORMATION
  Report Type: 
  Country: None (occurrence: None)
  Receive Date: 20090710
  Receipt Date: 20090630
  Transmission Date: 20100115
  Serious: Yes (Disabling)
  Sender: FDA-Public Use
  Company Number: FR-ELI_LILLY_AND_COMPANY-FR200905003804

PATIENT
  Age: 74 Year
  Sex: Male

DRUGS (7)
  1. ALIMTA [Suspect]
     Indication: LUNG ADENOCARCINOMA
     Dosage: 500 MG/M2, EVERY 3 WEEKS OR 950 MG INFUSION
     Route: 042
     Dates: start: 20090311
  2. CISPLATIN [Concomitant]
     Indication: LUNG ADENOCARCINOMA
     Dosage: 143 MG, OTHER EVERY THREE WEEKS
     Route: 042
     Dates: start: 20090311
  3. FOLIC ACID [Concomitant]
     Indication: VITAMIN SUPPLEMENTATION
     Dosage: UNK, UNKNOWN
     Route: 065
     Dates: start: 20090301
  4. VITAMIN B-12 [Concomitant]
     Indication: VITAMIN SUPPLEMENTATION
     Dosage: UNK, UNKNOWN
     Route: 065
     Dates: start: 20090301
  5. CORTICOSTEROID NOS [Concomitant]
     Dosage: UNK, UNKNOWN
     Route: 065
     Dates: start: 20090301
  6. EMEND [Concomitant]
     Indication: PROPHYLAXIS OF NAUSEA AND VOMITING
     Dates: start: 20090301
  7. ONDANSETRON HCL [Concomitant]
     Indication: PROPHYLAXIS OF NAUSEA AND VOMITING
     Dates: start: 20090301

REACTIONS (2)
  - INSOMNIA [None]
  - RESTLESS LEGS SYNDROME [None]
